FAERS Safety Report 4705402-1 (Version None)
Quarter: 2005Q3

REPORT INFORMATION
  Report Type: 
  Country: None (occurrence: None)
  Receive Date: 20050701
  Receipt Date: 20020123
  Transmission Date: 20060218
  Serious: Yes (Hospitalization)
  Sender: FDA-Public Use
  Company Number: FR-GLAXOSMITHKLINE-B0134011A

PATIENT
  Age: 1 Day
  Sex: Male
  Weight: 2.8 kg

DRUGS (4)
  1. RETROVIR [Suspect]
     Indication: ANTIVIRAL PROPHYLAXIS
     Route: 048
     Dates: start: 20000117, end: 20000228
  2. ZIDOVUDINE [Suspect]
     Indication: HIV INFECTION
     Dates: start: 19990923
  3. DIDANOSINE [Suspect]
     Indication: HIV INFECTION
     Dates: start: 19990923
  4. METHADONE HCL [Concomitant]
     Indication: DRUG DEPENDENCE
     Dosage: 10MG PER DAY

REACTIONS (11)
  - BLOOD CREATINE PHOSPHOKINASE INCREASED [None]
  - BLOOD LACTIC ACID INCREASED [None]
  - CAESAREAN SECTION [None]
  - DRUG EXPOSURE DURING PREGNANCY [None]
  - KNEE DEFORMITY [None]
  - LACTATE PYRUVATE RATIO INCREASED [None]
  - MACROCYTOSIS [None]
  - NEONATAL DISORDER [None]
  - NEUTROPENIA [None]
  - NEUTROPENIA NEONATAL [None]
  - STRABISMUS [None]
